FAERS Safety Report 9176719 (Version 1)
Quarter: 2013Q1

REPORT INFORMATION
  Report Type: Spontaneous
  Country: US (occurrence: US)
  Receive Date: 20130321
  Receipt Date: 20130321
  Transmission Date: 20140127
  Serious: No
  Sender: FDA-Public Use
  Company Number: US-MYLANLABS-2012S1008090

PATIENT
  Age: 67 Year
  Sex: Female

DRUGS (7)
  1. AMLODIPINE BESILATE TABLETS [Suspect]
     Indication: BLOOD PRESSURE
  2. DILTIAZEM [Suspect]
     Indication: BLOOD PRESSURE
  3. ACCUPRIL [Suspect]
     Indication: BLOOD PRESSURE
  4. NORVASC [Suspect]
     Indication: BLOOD PRESSURE
  5. BENADRYL [Suspect]
  6. BACTRIM [Suspect]
  7. CEFTIN [Suspect]

REACTIONS (2)
  - Rash [Recovered/Resolved]
  - Pruritus [Recovered/Resolved]
